FAERS Safety Report 12480689 (Version 1)
Quarter: 2016Q2

REPORT INFORMATION
  Report Type: Spontaneous
  Country: AU (occurrence: AU)
  Receive Date: 20160620
  Receipt Date: 20160620
  Transmission Date: 20160815
  Serious: Yes (Death, Hospitalization, Other)
  Sender: FDA-Public Use
  Company Number: AU-GLAXOSMITHKLINE-AU2016GSK084255

PATIENT
  Age: 69 Year
  Sex: Male

DRUGS (4)
  1. PREDNISOLONE. [Suspect]
     Active Substance: PREDNISOLONE
     Indication: PNEUMONITIS
  2. HYDROCORTISONE. [Concomitant]
     Active Substance: HYDROCORTISONE
  3. ESOMEPRAZOLE [Concomitant]
     Active Substance: ESOMEPRAZOLE
  4. ACYCLOVIR. [Suspect]
     Active Substance: ACYCLOVIR
     Indication: PNEUMONIA VIRAL
     Dosage: 75 MG, UNK

REACTIONS (8)
  - Respiratory gas exchange disorder [Fatal]
  - Melaena [Fatal]
  - Condition aggravated [Fatal]
  - Drug ineffective [Fatal]
  - Thrombocytopenia [Fatal]
  - Hypercapnia [Fatal]
  - Haematemesis [Fatal]
  - Acute respiratory distress syndrome [Fatal]
